FAERS Safety Report 5159522-0 (Version None)
Quarter: 2006Q4

REPORT INFORMATION
  Report Type: 
  Country: None (occurrence: None)
  Receive Date: 20061120
  Receipt Date: 20061102
  Transmission Date: 20070319
  Serious: Yes (Hospitalization)
  Sender: FDA-Public Use
  Company Number: JP-2006-030239

PATIENT
  Age: 54 Year
  Sex: Male

DRUGS (8)
  1. BETAFERON (INTERFERON BETA -1B) INJECTION, 250UG [Suspect]
     Indication: MULTIPLE SCLEROSIS
     Dosage: 8 MIU, EVERY 2D, SUBCUTANEOUS
     Route: 058
     Dates: start: 20051001
  2. PREDONINE (PREDNISOLONE) TABLET, 5MG [Suspect]
     Indication: MULTIPLE SCLEROSIS
     Dosage: 10 MG, 1X/DAY, ORAL
     Route: 048
     Dates: start: 20030501
  3. IMURAN (AZATHIOPRINE) TABLET [Concomitant]
  4. PLETAAL (CILOSTAZOL), TABLET [Concomitant]
  5. TOLEDOMIN (MILNACIPRAN HYDROCHLORIDE) TABLET [Concomitant]
  6. TEGRETAL (CARBAMAZEPINE) TABLET [Concomitant]
  7. GASTER D (FAMOTIDINE) TABLET [Concomitant]
  8. CLONAZEPAM [Concomitant]

REACTIONS (5)
  - DRUG INEFFECTIVE [None]
  - GAIT DISTURBANCE [None]
  - HEMIPLEGIA [None]
  - LACUNAR INFARCTION [None]
  - VISUAL DISTURBANCE [None]
